FAERS Safety Report 9092940 (Version 1)
Quarter: 2013Q1

REPORT INFORMATION
  Report Type: Report from Study
  Country: US (occurrence: US)
  Receive Date: 20130218
  Receipt Date: 20130218
  Transmission Date: 20140127
  Serious: No
  Sender: FDA-Public Use
  Company Number: US-ABBOTT-12P-163-0971381-00

PATIENT
  Sex: Female
  Weight: 86.26 kg

DRUGS (5)
  1. SIMCOR 500/20 [Suspect]
     Indication: HIGH DENSITY LIPOPROTEIN DECREASED
     Dosage: 500/20MG
  2. CALCIUM [Concomitant]
     Indication: PRODUCT USED FOR UNKNOWN INDICATION
  3. VITAMIN D [Concomitant]
     Indication: PRODUCT USED FOR UNKNOWN INDICATION
  4. LOW DOSE ASA [Concomitant]
     Indication: PRODUCT USED FOR UNKNOWN INDICATION
  5. LISINOP/HCTZ [Concomitant]
     Indication: PRODUCT USED FOR UNKNOWN INDICATION

REACTIONS (1)
  - Flushing [Recovered/Resolved]
